APPROVED DRUG PRODUCT: QNASL
Active Ingredient: BECLOMETHASONE DIPROPIONATE
Strength: 0.08MG/ACTUATION
Dosage Form/Route: AEROSOL, METERED;NASAL
Application: N202813 | Product #001
Applicant: TEVA BRANDED PHARMACEUTICAL PRODUCTS R AND D LLC
Approved: Mar 23, 2012 | RLD: Yes | RS: Yes | Type: RX

PATENTS:
Patent 10188811 | Expires: Oct 21, 2031